FAERS Safety Report 10165518 (Version 1)
Quarter: 2014Q2

REPORT INFORMATION
  Report Type: Spontaneous
  Country: US (occurrence: US)
  Receive Date: 20140510
  Receipt Date: 20140510
  Transmission Date: 20141212
  Serious: No
  Sender: FDA-Public Use
  Company Number: US-BRISTOL-MYERS SQUIBB COMPANY-19845338

PATIENT
  Age: 77 Year
  Sex: Female
  Weight: 113.38 kg

DRUGS (2)
  1. BYDUREON [Suspect]
     Route: 058
     Dates: start: 2013
  2. STEROIDS [Suspect]

REACTIONS (12)
  - Injection site mass [Unknown]
  - Abdominal pain upper [Unknown]
  - Dizziness [Unknown]
  - Fall [Unknown]
  - Blood glucose increased [Unknown]
  - Constipation [Unknown]
  - Laceration [Unknown]
  - Skin discolouration [Unknown]
  - Blister [Unknown]
  - Tremor [Unknown]
  - Lower respiratory tract infection [Unknown]
  - Rash macular [Unknown]
